FAERS Safety Report 6699014-0 (Version None)
Quarter: 2010Q2

REPORT INFORMATION
  Report Type: 
  Country: None (occurrence: None)
  Receive Date: 20100427
  Receipt Date: 20100422
  Transmission Date: 20101027
  Serious: Yes (Hospitalization)
  Sender: FDA-Public Use
  Company Number: US-RB-001018-10

PATIENT
  Age: 58 Year
  Sex: Female

DRUGS (1)
  1. SUBOXONE [Suspect]
     Indication: PAIN
     Dosage: TAPERING DOSES FROM 32 MG DAILY TO 8 MG
     Route: 060
     Dates: start: 20100101, end: 20100308

REACTIONS (4)
  - BACK PAIN [None]
  - FATIGUE [None]
  - FEAR [None]
  - SCOLIOSIS [None]
